FAERS Safety Report 6170225-6 (Version None)
Quarter: 2009Q2

REPORT INFORMATION
  Report Type: 
  Country: None (occurrence: None)
  Receive Date: 20090428
  Receipt Date: 20090426
  Transmission Date: 20091009
  Serious: Yes (Death)
  Sender: FDA-Public Use
  Company Number: PHHY2009CA15399

PATIENT
  Sex: Male

DRUGS (2)
  1. DIOVAN T30230++HY [Suspect]
     Dosage: 80 MG, UNK
     Route: 048
     Dates: start: 20081210, end: 20090407
  2. COUMADIN [Concomitant]

REACTIONS (2)
  - GASTROINTESTINAL HAEMORRHAGE [None]
  - NEOPLASM [None]
